FAERS Safety Report 6742695-3 (Version None)
Quarter: 2010Q2

REPORT INFORMATION
  Report Type: 
  Country: None (occurrence: None)
  Receive Date: 20100526
  Receipt Date: 20090723
  Transmission Date: 20101027
  Serious: No
  Sender: FDA-Public Use
  Company Number: US-ABBOTT-09P-163-0587744-00

PATIENT
  Sex: Male
  Weight: 68.1 kg

DRUGS (4)
  1. ZEMPLAR [Suspect]
     Indication: RENAL IMPAIRMENT
     Route: 048
     Dates: start: 20090501
  2. ZEMPLAR [Suspect]
     Route: 048
     Dates: start: 20090701
  3. WARFARIN SODIUM [Concomitant]
     Indication: HEART RATE IRREGULAR
  4. ANTIBIOTIC [Concomitant]
     Indication: DENTAL OPERATION

REACTIONS (3)
  - FATIGUE [None]
  - PROTHROMBIN LEVEL INCREASED [None]
  - TOOTH DISORDER [None]
